FAERS Safety Report 18721332 (Version 3)
Quarter: 2022Q2

REPORT INFORMATION
  Report Type: Spontaneous
  Country: US (occurrence: US)
  Receive Date: 20210109
  Receipt Date: 20220608
  Transmission Date: 20220721
  Serious: No
  Sender: FDA-Public Use
  Company Number: US-TEVA-2021-US-1866816

PATIENT
  Age: 52 Year
  Sex: Female

DRUGS (2)
  1. TREPROSTINIL [Suspect]
     Active Substance: TREPROSTINIL
     Indication: Pulmonary arterial hypertension
     Dosage: DOSE OR AMOUNT: 20NG/KG/MIN?FREQUENCY: 30ML/24HRS, CONTINUOUS
     Route: 042
     Dates: start: 20191024
  2. TREPROSTINIL [Suspect]
     Active Substance: TREPROSTINIL
     Dosage: 34NG/KG/MIN
     Route: 042
     Dates: start: 20220501

REACTIONS (6)
  - Dizziness [Unknown]
  - Chest pain [Unknown]
  - Paranasal sinus discomfort [Unknown]
  - Diarrhoea [Unknown]
  - Restlessness [Unknown]
  - Headache [Unknown]

NARRATIVE: CASE EVENT DATE: 20201214
